FAERS Safety Report 16934959 (Version 7)
Quarter: 2021Q2

REPORT INFORMATION
  Report Type: Spontaneous
  Country: FR (occurrence: FR)
  Receive Date: 20191018
  Receipt Date: 20210427
  Transmission Date: 20210716
  Serious: Yes (Death, Hospitalization, Other)
  Sender: FDA-Public Use
  Company Number: FR-JNJFOC-20191016361

PATIENT
  Age: 60 Year
  Sex: Female

DRUGS (14)
  1. DARZALEX [Suspect]
     Active Substance: DARATUMUMAB
     Route: 065
     Dates: start: 20190116, end: 20190409
  2. THALIDOMIDE [Suspect]
     Active Substance: THALIDOMIDE
     Indication: PLASMA CELL MYELOMA
     Route: 065
     Dates: start: 20190418, end: 20190513
  3. CARFILZOMIB [Suspect]
     Active Substance: CARFILZOMIB
     Indication: PLASMA CELL MYELOMA
     Route: 065
     Dates: start: 20190517, end: 20190517
  4. CARFILZOMIB [Suspect]
     Active Substance: CARFILZOMIB
     Route: 065
     Dates: start: 20190116, end: 20190409
  5. NINLARO [Suspect]
     Active Substance: IXAZOMIB CITRATE
     Indication: PLASMA CELL MYELOMA
     Dosage: 4 MILLIGRAM
     Route: 065
     Dates: end: 20181221
  6. REVLIMID [Suspect]
     Active Substance: LENALIDOMIDE
     Indication: PLASMA CELL MYELOMA
     Dosage: 25 MILLIGRAM
     Route: 065
     Dates: end: 20181221
  7. POMALIDOMIDE [Suspect]
     Active Substance: POMALIDOMIDE
     Indication: PLASMA CELL MYELOMA
     Dosage: 4 MILLIGRAM
     Route: 048
     Dates: start: 20181121, end: 20181212
  8. CYCLOPHOSPHAMIDE. [Suspect]
     Active Substance: CYCLOPHOSPHAMIDE
     Indication: PLASMA CELL MYELOMA
     Dosage: 300 MILLIGRAM
     Route: 048
     Dates: start: 20181121, end: 20181212
  9. DEXAMETHASONE. [Suspect]
     Active Substance: DEXAMETHASONE
     Indication: PLASMA CELL MYELOMA
     Route: 065
     Dates: start: 20190418, end: 20190513
  10. DEXAMETHASONE. [Suspect]
     Active Substance: DEXAMETHASONE
     Route: 065
     Dates: start: 20190116, end: 20190409
  11. INNOHEP [Concomitant]
     Active Substance: TINZAPARIN SODIUM
     Indication: PROPHYLAXIS
     Route: 058
     Dates: start: 20180813
  12. VELCADE [Suspect]
     Active Substance: BORTEZOMIB
     Indication: PLASMA CELL MYELOMA
     Route: 065
     Dates: start: 20190418, end: 20190513
  13. DARZALEX [Suspect]
     Active Substance: DARATUMUMAB
     Indication: PLASMA CELL MYELOMA
     Route: 065
     Dates: end: 20190517
  14. DOXORUBICINE                       /00330901/ [Suspect]
     Active Substance: DOXORUBICIN
     Indication: PLASMA CELL MYELOMA
     Route: 065
     Dates: start: 20190418, end: 20190513

REACTIONS (24)
  - General physical health deterioration [Unknown]
  - Epistaxis [Recovering/Resolving]
  - Anaemia [Recovering/Resolving]
  - Constipation [Unknown]
  - Cholestasis [Unknown]
  - Ascites [Unknown]
  - Decubitus ulcer [Unknown]
  - Pain [Unknown]
  - Death [Fatal]
  - Thrombocytopenia [Recovering/Resolving]
  - Pruritus [Recovering/Resolving]
  - Dyspepsia [Unknown]
  - Diarrhoea [Unknown]
  - Joint ankylosis [Unknown]
  - Anxiety disorder [Unknown]
  - Jaundice [Recovering/Resolving]
  - Haemorrhoidal haemorrhage [Recovered/Resolved]
  - Hepatocellular injury [Unknown]
  - Hepatic cirrhosis [Unknown]
  - Body dysmorphic disorder [Unknown]
  - Sleep disorder [Unknown]
  - Loss of personal independence in daily activities [Unknown]
  - Malnutrition [Unknown]
  - Disease progression [Unknown]

NARRATIVE: CASE EVENT DATE: 20180926
